FAERS Safety Report 7921874-3 (Version None)
Quarter: 2011Q4

REPORT INFORMATION
  Report Type: 
  Country: None (occurrence: None)
  Receive Date: 20111117
  Receipt Date: 20111109
  Transmission Date: 20120403
  Serious: Yes (Hospitalization)
  Sender: FDA-Public Use
  Company Number: US-ASTRAZENECA-2011SE67777

PATIENT
  Age: 50 Year
  Sex: Male
  Weight: 90.7 kg

DRUGS (17)
  1. SEROQUEL XR [Suspect]
     Route: 048
  2. SEROQUEL XR [Suspect]
     Route: 048
  3. SEROQUEL XR [Suspect]
     Indication: MOOD SWINGS
     Route: 048
     Dates: start: 20080101
  4. VERPAMIL [Concomitant]
     Indication: HYPERTENSION
  5. SEROQUEL XR [Suspect]
     Indication: BIPOLAR DISORDER
     Route: 048
     Dates: start: 20080101
  6. SEROQUEL XR [Suspect]
     Route: 048
  7. NEXIUM [Concomitant]
     Indication: GASTROOESOPHAGEAL REFLUX DISEASE
  8. MALLK CHEM [Concomitant]
     Indication: PAIN
  9. SEROQUEL XR [Suspect]
     Route: 048
  10. SEROQUEL XR [Suspect]
     Route: 048
  11. HYDROCO/APAP10 [Concomitant]
     Indication: PAIN
  12. SEROQUEL XR [Suspect]
     Route: 048
  13. SEROQUEL XR [Suspect]
     Route: 048
  14. SEROQUEL XR [Suspect]
     Indication: DEPRESSION
     Route: 048
     Dates: start: 20080101
  15. SEROQUEL XR [Suspect]
     Route: 048
  16. SEROQUEL XR [Suspect]
     Route: 048
  17. LISINOPRIL [Concomitant]
     Indication: HYPERTENSION

REACTIONS (4)
  - NIGHT SWEATS [None]
  - CHOLELITHIASIS [None]
  - MALAISE [None]
  - HEPATIC CIRRHOSIS [None]
